FAERS Safety Report 16075824 (Version 1)
Quarter: 2019Q1

REPORT INFORMATION
  Report Type: Spontaneous
  Country: HK (occurrence: HK)
  Receive Date: 20190315
  Receipt Date: 20190315
  Transmission Date: 20190418
  Serious: Yes (Life-Threatening, Hospitalization, Other)
  Sender: FDA-Public Use
  Company Number: HK-BAUSCH-BL-2019-003235

PATIENT
  Age: 65 Year
  Sex: Female

DRUGS (6)
  1. TACROLIMUS. [Interacting]
     Active Substance: TACROLIMUS
     Dosage: DOSE REDUCED
     Route: 048
  2. PREDNISOLONE. [Interacting]
     Active Substance: PREDNISOLONE
     Dosage: PROLONGED USE OF PREDNISOLONE; DOSE REDUCED
     Route: 048
  3. PREDNISOLONE. [Suspect]
     Active Substance: PREDNISOLONE
     Indication: IMMUNOSUPPRESSANT DRUG THERAPY
     Dosage: PROLONGED USE OF PREDNISOLONE
     Route: 048
  4. MYCOPHENOLATE MOFETIL. [Interacting]
     Active Substance: MYCOPHENOLATE MOFETIL
     Dosage: DOSE REDUCED
     Route: 065
  5. MYCOPHENOLATE MOFETIL. [Interacting]
     Active Substance: MYCOPHENOLATE MOFETIL
     Indication: IMMUNOSUPPRESSANT DRUG THERAPY
     Route: 065
  6. TACROLIMUS. [Interacting]
     Active Substance: TACROLIMUS
     Indication: IMMUNOSUPPRESSANT DRUG THERAPY
     Route: 048

REACTIONS (10)
  - Enterovirus infection [Recovering/Resolving]
  - Subcutaneous emphysema [Recovering/Resolving]
  - Drug interaction [Recovering/Resolving]
  - Pneumocystis jirovecii pneumonia [Recovering/Resolving]
  - Rhinovirus infection [Recovering/Resolving]
  - Respiratory syncytial virus infection [Recovering/Resolving]
  - Cytomegalovirus infection [Recovering/Resolving]
  - Candida infection [Recovering/Resolving]
  - Pneumothorax spontaneous [Recovered/Resolved]
  - Pneumomediastinum [Recovering/Resolving]
